FAERS Safety Report 7225216-0 (Version None)
Quarter: 2011Q1

REPORT INFORMATION
  Report Type: 
  Country: None (occurrence: None)
  Receive Date: 20110113
  Receipt Date: 20101228
  Transmission Date: 20110831
  Serious: Yes (Hospitalization)
  Sender: FDA-Public Use
  Company Number: A0905221A

PATIENT
  Age: 53 Year
  Sex: Female

DRUGS (2)
  1. PAZOPANIB [Suspect]
     Indication: SMALL CELL LUNG CANCER STAGE UNSPECIFIED
     Dosage: 800MG PER DAY
     Route: 048
     Dates: start: 20101110, end: 20101208
  2. SEROQUEL [Concomitant]

REACTIONS (8)
  - TRANSIENT ISCHAEMIC ATTACK [None]
  - ATAXIA [None]
  - HEMIPARESIS [None]
  - CONFUSIONAL STATE [None]
  - ELECTROCARDIOGRAM QT PROLONGED [None]
  - URINARY TRACT INFECTION [None]
  - VIITH NERVE PARALYSIS [None]
  - HYPOKALAEMIA [None]
